FAERS Safety Report 23167142 (Version 2)
Quarter: 2024Q3

REPORT INFORMATION
  Report Type: Report from Study
  Country: ME (occurrence: ME)
  Receive Date: 20231109
  Receipt Date: 20240726
  Transmission Date: 20241016
  Serious: Yes (Hospitalization, Other)
  Sender: TAKEDA
  Company Number: ME-TAKEDA-2023TUS109144

PATIENT
  Age: 35 Year
  Sex: Male
  Weight: 82 kg

DRUGS (4)
  1. VEDOLIZUMAB [Suspect]
     Active Substance: VEDOLIZUMAB
     Indication: Colitis ulcerative
     Dosage: 300 MILLIGRAM
     Route: 042
     Dates: start: 20220314, end: 20220729
  2. Salofalk [Concomitant]
     Indication: Colitis ulcerative
     Dosage: 3 GRAM
     Route: 048
     Dates: start: 20220131
  3. Salofalk [Concomitant]
     Dosage: UNK
     Route: 054
  4. RIFAXIMIN [Concomitant]
     Active Substance: RIFAXIMIN
     Indication: Colitis ulcerative
     Dosage: UNK UNK, BID
     Route: 048
     Dates: start: 20220701, end: 20220708

REACTIONS (2)
  - Colitis ulcerative [Recovered/Resolved]
  - Therapeutic response decreased [Recovered/Resolved]

NARRATIVE: CASE EVENT DATE: 20220928
